FAERS Safety Report 9388931 (Version 2)
Quarter: 2013Q4

REPORT INFORMATION
  Report Type: Spontaneous
  Country: US (occurrence: US)
  Receive Date: 20130708
  Receipt Date: 20131226
  Transmission Date: 20140711
  Serious: Yes (Hospitalization)
  Sender: FDA-Public Use
  Company Number: US-B.I. PHARMACEUTICALS,INC./RIDGEFIELD-2013-BI-19379BP

PATIENT
  Age: 64 Year
  Sex: Male
  Weight: 145 kg

DRUGS (25)
  1. PRADAXA [Suspect]
     Indication: ANTICOAGULANT THERAPY
     Route: 048
     Dates: start: 20110309, end: 20120824
  2. PRADAXA [Suspect]
     Indication: ANGIOPATHY
  3. PRADAXA [Suspect]
     Indication: ATRIAL FIBRILLATION
  4. PRADAXA [Suspect]
     Indication: PULMONARY EMBOLISM
  5. PROTONIX [Concomitant]
     Dosage: 40 MG
     Route: 048
  6. PLAVIX [Concomitant]
     Indication: ANTICOAGULANT THERAPY
     Dosage: 64 MG
     Route: 048
     Dates: start: 200610, end: 201205
  7. PLAVIX [Concomitant]
     Indication: ANGIOPATHY
  8. PLAVIX [Concomitant]
     Indication: ATRIAL FIBRILLATION
  9. PLAVIX [Concomitant]
     Indication: PULMONARY EMBOLISM
  10. DIOVAN [Concomitant]
     Dosage: 40 MG
     Route: 048
     Dates: start: 200610, end: 201212
  11. DULCOLAX STOOL SOFTENER [Concomitant]
     Route: 048
  12. KLOR-CON [Concomitant]
     Dosage: 20 MEQ
     Route: 048
     Dates: start: 201201, end: 201210
  13. LOVAZA [Concomitant]
     Dosage: 4 G
     Route: 048
  14. NITROSTAT [Concomitant]
     Indication: CHEST PAIN
     Route: 060
  15. PRAVASTATIN [Concomitant]
     Dosage: 40 MG
     Route: 048
  16. RYTHMOL [Concomitant]
     Indication: ATRIAL FIBRILLATION
     Dosage: 675 MG
     Route: 048
     Dates: start: 201103, end: 201211
  17. TORSEMIDE [Concomitant]
     Dosage: 40 MG
     Route: 048
     Dates: start: 200912, end: 201209
  18. TRICOR [Concomitant]
     Dosage: 145 MG
     Route: 048
     Dates: start: 200810, end: 201212
  19. CARVEDILOL [Concomitant]
     Dosage: 25 MG
     Route: 048
     Dates: start: 201001, end: 201209
  20. DIGOXIN [Concomitant]
     Route: 048
     Dates: start: 201001, end: 201211
  21. TAZTIA [Concomitant]
     Indication: PULMONARY HYPERTENSION
     Dosage: 120 MG
     Route: 048
     Dates: start: 201102, end: 201211
  22. ISOSORBIDE MONONITRATE [Concomitant]
     Dosage: 60 MG
     Route: 048
     Dates: start: 200610, end: 201212
  23. LEVOTHYROXINE [Concomitant]
     Dosage: 25 MCG
     Route: 048
  24. MAGNESIUM OXIDE [Concomitant]
     Dosage: 400 MG
     Route: 048
  25. METFORMIN [Concomitant]
     Dosage: 1000 MG
     Route: 048
     Dates: start: 201009, end: 201211

REACTIONS (1)
  - Lower gastrointestinal haemorrhage [Recovered/Resolved]
